FAERS Safety Report 6439269-0 (Version None)
Quarter: 2009Q4

REPORT INFORMATION
  Report Type: 
  Country: None (occurrence: None)
  Receive Date: 20091113
  Receipt Date: 20091103
  Transmission Date: 20100525
  Serious: Yes (Other)
  Sender: FDA-Public Use
  Company Number: CA-JNJFOC-20091101154

PATIENT
  Sex: Female
  Weight: 80.5 kg

DRUGS (11)
  1. REMICADE [Suspect]
     Indication: RHEUMATOID ARTHRITIS
     Route: 042
     Dates: start: 20070726
  2. PREDNISONE [Concomitant]
  3. FOSAMAX [Concomitant]
  4. PLAQUENIL [Concomitant]
  5. GABAPENTIN [Concomitant]
  6. QUININE SULPHATE [Concomitant]
  7. OMEPRAZOLE [Concomitant]
  8. VITAMIN D3 [Concomitant]
  9. CALCIUM [Concomitant]
  10. TYLENOL (CAPLET) [Concomitant]
  11. MULTIPLE VITAMIN [Concomitant]

REACTIONS (2)
  - GAIT DISTURBANCE [None]
  - HAND FRACTURE [None]
